FAERS Safety Report 15330467 (Version 3)
Quarter: 2018Q4

REPORT INFORMATION
  Report Type: Other
  Country: PL (occurrence: PL)
  Receive Date: 20180829
  Receipt Date: 20181114
  Transmission Date: 20190204
  Serious: Yes (Life-Threatening, Hospitalization, Disabling, Other)
  Sender: FDA-Public Use
  Company Number: PL-APOTEX-2018AP019342

PATIENT
  Age: 50 Year
  Sex: Female

DRUGS (26)
  1. ESCITALOPRAM [Suspect]
     Active Substance: ESCITALOPRAM OXALATE
     Indication: DEPRESSION
  2. DOXEPIN [Suspect]
     Active Substance: DOXEPIN
     Indication: DEPRESSED MOOD
  3. ZOLPIDEM [Suspect]
     Active Substance: ZOLPIDEM\ZOLPIDEM TARTRATE
     Indication: SLEEP DISORDER
  4. CONCOR [Suspect]
     Active Substance: BISOPROLOL FUMARATE
     Indication: SUICIDE ATTEMPT
     Dosage: UNK
     Route: 065
  5. PERINDOPRIL [Concomitant]
     Active Substance: PERINDOPRIL
     Indication: HYPERTENSION
     Dosage: UNK
     Route: 065
  6. ESCITALOPRAM [Suspect]
     Active Substance: ESCITALOPRAM OXALATE
     Indication: AFFECTIVE DISORDER
     Dosage: 10 MG, QD
     Route: 048
  7. ESCITALOPRAM [Suspect]
     Active Substance: ESCITALOPRAM OXALATE
     Indication: INSOMNIA
  8. SERTRALINE [Suspect]
     Active Substance: SERTRALINE HYDROCHLORIDE
     Indication: DEPRESSION
     Dosage: 50 MG, QD AM (IN THE MORNING)
     Route: 048
  9. TROSICAM [Suspect]
     Active Substance: MELOXICAM
     Indication: ARTHRALGIA
     Dosage: UNK
     Route: 065
  10. TROSICAM [Suspect]
     Active Substance: MELOXICAM
     Dosage: UNK
     Route: 065
  11. SERTRALINE [Suspect]
     Active Substance: SERTRALINE HYDROCHLORIDE
     Indication: DEPRESSED MOOD
  12. PERINDOPRIL [Suspect]
     Active Substance: PERINDOPRIL
     Indication: SUICIDE ATTEMPT
     Dosage: UNK
     Route: 048
  13. TRAMADOL. [Suspect]
     Active Substance: TRAMADOL
     Indication: OSTEOARTHRITIS
  14. DOXEPIN [Suspect]
     Active Substance: DOXEPIN
     Indication: AFFECTIVE DISORDER
     Dosage: 25 MG QD AT BEDTIME
     Route: 048
  15. MELOXICAM. [Suspect]
     Active Substance: MELOXICAM
     Indication: OSTEOARTHRITIS
     Dosage: UNK, QD
     Route: 048
  16. DOXEPIN [Suspect]
     Active Substance: DOXEPIN
     Indication: AFFECTIVE DISORDER
  17. BISOPROLOL [Suspect]
     Active Substance: BISOPROLOL
     Indication: PRODUCT USED FOR UNKNOWN INDICATION
     Dosage: UNK
     Route: 065
  18. ATORVASTATIN [Concomitant]
     Active Substance: ATORVASTATIN
     Indication: HYPERCHOLESTEROLAEMIA
     Dosage: UNK
     Route: 065
  19. CLARITHROMYCIN. [Suspect]
     Active Substance: CLARITHROMYCIN
     Indication: PRODUCT USED FOR UNKNOWN INDICATION
  20. PERINDOPRIL [Suspect]
     Active Substance: PERINDOPRIL
     Indication: HYPERTENSION
  21. ATORVASTATIN [Suspect]
     Active Substance: ATORVASTATIN
     Indication: HYPERCHOLESTEROLAEMIA
     Dosage: UNK, QD (BEDTIME)
     Route: 048
  22. ZOLPIDEM [Suspect]
     Active Substance: ZOLPIDEM\ZOLPIDEM TARTRATE
     Indication: DEPRESSED MOOD
     Dosage: 10 MG, QD AT BEDTIME
     Route: 048
  23. TRAMADOL. [Suspect]
     Active Substance: TRAMADOL
     Indication: ARTHRALGIA
     Dosage: UNK, QD
     Route: 048
  24. CLARITHROMYCIN. [Suspect]
     Active Substance: CLARITHROMYCIN
     Indication: TINNITUS
     Dosage: UNK, QD, TWO 10 DAY COURSES
     Route: 048
  25. ATORIS [Suspect]
     Active Substance: ATORVASTATIN CALCIUM
     Indication: SUICIDE ATTEMPT
     Dosage: UNK
     Route: 065
  26. POLSEN [Suspect]
     Active Substance: ZOLPIDEM TARTRATE
     Indication: DEPRESSION
     Dosage: 10 MG AT BEDTIME
     Route: 065

REACTIONS (15)
  - Intentional overdose [Unknown]
  - Suicide attempt [Recovered/Resolved]
  - Affective disorder [Recovering/Resolving]
  - Drug abuse [Unknown]
  - Drug ineffective [Unknown]
  - Condition aggravated [Recovering/Resolving]
  - Overdose [Recovered/Resolved]
  - Loss of consciousness [Recovered/Resolved]
  - Tinnitus [Recovered/Resolved]
  - Impaired work ability [Recovered/Resolved]
  - Depression [Recovering/Resolving]
  - Intentional product misuse [Recovering/Resolving]
  - Insomnia [Recovering/Resolving]
  - Loss of personal independence in daily activities [Recovered/Resolved]
  - Product use in unapproved indication [Recovered/Resolved]
